FAERS Safety Report 9268672 (Version 6)
Quarter: 2014Q2

REPORT INFORMATION
  Report Type: Spontaneous
  Country: US (occurrence: US)
  Receive Date: 20130502
  Receipt Date: 20140430
  Transmission Date: 20141212
  Serious: Yes (Other)
  Sender: FDA-Public Use
  Company Number: US-MERCK-1305USA000881

PATIENT
  Sex: Male
  Weight: 96.6 kg

DRUGS (4)
  1. PROPECIA [Suspect]
     Indication: ANDROGENETIC ALOPECIA
     Dosage: 1 MG, QD
     Route: 048
     Dates: start: 2004, end: 2005
  2. FINASTERIDE [Suspect]
     Indication: ANDROGENETIC ALOPECIA
     Dosage: 5 MG, 1/4 TABLET, QD
     Route: 048
     Dates: start: 2007, end: 2010
  3. ADVAIR [Concomitant]
     Indication: ASTHMA
     Dosage: UNK
     Dates: start: 199907
  4. PROAIR (ALBUTEROL SULFATE) [Concomitant]
     Indication: ASTHMA
     Dosage: UNK
     Dates: start: 198410

REACTIONS (25)
  - Prostate cancer [Unknown]
  - Breast cancer male [Unknown]
  - Anxiety [Unknown]
  - Reproductive tract disorder [Unknown]
  - Peyronie^s disease [Unknown]
  - Cognitive disorder [Unknown]
  - Wrong technique in drug usage process [Unknown]
  - Conjunctivitis [Recovering/Resolving]
  - Scrotal swelling [Recovering/Resolving]
  - Haematuria [Unknown]
  - Urethral dilatation [Unknown]
  - Gastrooesophageal reflux disease [Not Recovered/Not Resolved]
  - Eczema [Unknown]
  - Back pain [Unknown]
  - Urinary incontinence [Unknown]
  - Epididymitis [Unknown]
  - Orchitis [Unknown]
  - Urinary retention [Unknown]
  - Skin papilloma [Unknown]
  - Exposure to communicable disease [Unknown]
  - Dermatitis atopic [Unknown]
  - Blood testosterone decreased [Unknown]
  - Sexual dysfunction [Unknown]
  - Erectile dysfunction [Unknown]
  - Gynaecomastia [Unknown]
